FAERS Safety Report 4927986-0 (Version None)
Quarter: 2006Q1

REPORT INFORMATION
  Report Type: 
  Country: None (occurrence: None)
  Receive Date: 20060223
  Receipt Date: 20051207
  Transmission Date: 20060701
  Serious: Yes (Hospitalization)
  Sender: FDA-Public Use
  Company Number: S06-FRA-00797-01

PATIENT
  Age: 35 Year
  Sex: Female

DRUGS (2)
  1. ESCITALOPRAM OXALATE [Suspect]
  2. ANTIBIOTICS [Concomitant]

REACTIONS (2)
  - PYELONEPHRITIS ACUTE [None]
  - TRANSAMINASES INCREASED [None]
